FAERS Safety Report 15907620 (Version 1)
Quarter: 2019Q1

REPORT INFORMATION
  Report Type: Spontaneous
  Country: US (occurrence: US)
  Receive Date: 20190204
  Receipt Date: 20190204
  Transmission Date: 20190417
  Serious: Yes (Other)
  Sender: FDA-Public Use
  Company Number: US-SA-2019SA030389

PATIENT
  Age: 41 Year
  Sex: Female
  Weight: 72.57 kg

DRUGS (10)
  1. TRASTUZUMAB. [Concomitant]
     Active Substance: TRASTUZUMAB
  2. TAXOTERE [Suspect]
     Active Substance: DOCETAXEL
     Indication: BREAST CANCER FEMALE
     Dosage: 131MG-135MG, Q3W
     Route: 042
     Dates: start: 20140714, end: 20140714
  3. TAMOXIFEN [Concomitant]
     Active Substance: TAMOXIFEN
  4. GABAPENTIN. [Concomitant]
     Active Substance: GABAPENTIN
  5. PARAPLATIN [Concomitant]
     Active Substance: CARBOPLATIN
  6. MUCINEX DM [Concomitant]
     Active Substance: DEXTROMETHORPHAN HYDROBROMIDE\GUAIFENESIN
  7. TAXOTERE [Suspect]
     Active Substance: DOCETAXEL
     Dosage: 131MG-135MG, Q3W
     Route: 042
     Dates: start: 20141106, end: 20141106
  8. ROBITUSSIN DM [Concomitant]
     Active Substance: DEXTROMETHORPHAN HYDROBROMIDE\GUAIFENESIN
  9. BACTRIM [Concomitant]
     Active Substance: SULFAMETHOXAZOLE\TRIMETHOPRIM
  10. ABREVA [Concomitant]
     Active Substance: DOCOSANOL

REACTIONS (1)
  - Alopecia [Recovering/Resolving]

NARRATIVE: CASE EVENT DATE: 20140801
